FAERS Safety Report 6311357-9 (Version None)
Quarter: 2009Q3

REPORT INFORMATION
  Report Type: 
  Country: None (occurrence: None)
  Receive Date: 20090817
  Receipt Date: 20090813
  Transmission Date: 20100115
  Serious: Yes (Other)
  Sender: FDA-Public Use
  Company Number: US-ROXANE LABORATORIES, INC.-2009-RO-00824RO

PATIENT
  Age: 17 Year
  Sex: Female
  Weight: 62 kg

DRUGS (18)
  1. FUROSEMIDE [Suspect]
     Indication: FATIGUE
     Dosage: 20 MG
  2. FUROSEMIDE [Suspect]
     Indication: ORTHOPNOEA
  3. DIGOXIN [Suspect]
     Indication: FATIGUE
     Dosage: 0.125 MG
  4. DIGOXIN [Suspect]
     Indication: ORTHOPNOEA
  5. LACTATED RINGER'S [Suspect]
     Indication: EPIDURAL ANAESTHESIA
  6. LACTATED RINGER'S [Suspect]
     Indication: BLOOD PRESSURE DECREASED
     Route: 042
  7. LACTATED RINGER'S [Suspect]
     Indication: HEART RATE INCREASED
  8. LIDOCAINE AND EPINEPHRINE [Suspect]
     Indication: EPIDURAL ANAESTHESIA
     Route: 008
  9. LIDOCAINE AND EPINEPHRINE [Suspect]
     Route: 008
  10. LIDOCAINE AND EPINEPHRINE [Suspect]
     Route: 008
  11. FENTANYL [Suspect]
     Indication: EPIDURAL ANAESTHESIA
     Route: 008
  12. PHENYLEPHRINE [Concomitant]
     Indication: BLOOD PRESSURE DECREASED
     Route: 042
  13. PHENYLEPHRINE [Concomitant]
     Indication: HEART RATE INCREASED
     Route: 042
  14. EPHEDRINE [Concomitant]
     Indication: BLOOD PRESSURE DECREASED
  15. EPHEDRINE [Concomitant]
     Indication: HEART RATE INCREASED
  16. THIOPENTAL SODIUM [Concomitant]
     Indication: GENERAL ANAESTHESIA
  17. SUCCINYLCHOLINE [Concomitant]
     Indication: GENERAL ANAESTHESIA
  18. OXYGEN [Concomitant]
     Indication: EPIDURAL ANAESTHESIA

REACTIONS (2)
  - HEART RATE INCREASED [None]
  - HYPOTENSION [None]
